FAERS Safety Report 8382899-X (Version None)
Quarter: 2012Q2

REPORT INFORMATION
  Report Type: 
  Country: None (occurrence: None)
  Receive Date: 20120524
  Receipt Date: 20120514
  Transmission Date: 20120825
  Serious: Yes (Hospitalization)
  Sender: FDA-Public Use
  Company Number: IT-JNJFOC-20110610675

PATIENT
  Age: 66 Year
  Sex: Female

DRUGS (2)
  1. CHLORPHENIRAMINE MALEATE [Concomitant]
     Route: 048
     Dates: start: 20040912, end: 20110325
  2. REMICADE [Suspect]
     Indication: PSORIASIS
     Route: 042
     Dates: start: 20040912, end: 20110325

REACTIONS (1)
  - AORTIC VALVE STENOSIS [None]
